FAERS Safety Report 23084401 (Version 1)
Quarter: 2023Q4

REPORT INFORMATION
  Report Type: Spontaneous
  Country: DE (occurrence: DE)
  Receive Date: 20231019
  Receipt Date: 20231019
  Transmission Date: 20240109
  Serious: Yes (Hospitalization)
  Sender: FDA-Public Use
  Company Number: DE-AMK-268832

PATIENT
  Age: 45 Year
  Sex: Female
  Weight: 90 kg

DRUGS (2)
  1. PAXLOVID [Suspect]
     Active Substance: NIRMATRELVIR\RITONAVIR
     Indication: COVID-19
     Dosage: 3 DF (FREQ:{TOTAL};SINGLE INTAKE)
     Route: 048
     Dates: start: 20230905, end: 20230905
  2. MIRENA [Concomitant]
     Active Substance: LEVONORGESTREL
     Dosage: UNK (WORN FOR LONGER TIME)
     Route: 015

REACTIONS (2)
  - Palpitations [Recovered/Resolved]
  - Cardiovascular disorder [Recovered/Resolved]

NARRATIVE: CASE EVENT DATE: 20230905
